FAERS Safety Report 7019301-6 (Version None)
Quarter: 2010Q3

REPORT INFORMATION
  Report Type: 
  Country: None (occurrence: None)
  Receive Date: 20100922
  Receipt Date: 20100913
  Transmission Date: 20110219
  Serious: Yes (Hospitalization)
  Sender: FDA-Public Use
  Company Number: 2010MA002599

PATIENT
  Age: 21 Year
  Sex: Female
  Weight: 92 kg

DRUGS (1)
  1. RISPERIDONE [Suspect]
     Indication: PSYCHOTIC DISORDER
     Dosage: 4 MG QD

REACTIONS (11)
  - AGITATION [None]
  - AMENORRHOEA [None]
  - HYPERPROLACTINAEMIA [None]
  - INSOMNIA [None]
  - LOW DENSITY LIPOPROTEIN INCREASED [None]
  - MERYCISM [None]
  - METABOLIC DISORDER [None]
  - NAUSEA [None]
  - OBSESSIVE-COMPULSIVE DISORDER [None]
  - TARDIVE DYSKINESIA [None]
  - WEIGHT INCREASED [None]
